FAERS Safety Report 7474606-X (Version None)
Quarter: 2011Q1

REPORT INFORMATION
  Report Type: 
  Country: None (occurrence: None)
  Receive Date: 20110302
  Receipt Date: 20100823
  Transmission Date: 20110831
  Serious: Yes (Hospitalization)
  Sender: FDA-Public Use
  Company Number: 163-21880-10042309

PATIENT
  Age: 79 Year
  Sex: Female

DRUGS (12)
  1. REVLIMID [Suspect]
     Indication: MULTIPLE MYELOMA
     Dosage: 25 MG, DAILY X 21 DAYS, PO; 25 MG, DAILY X 21 DAYS, PO
     Route: 048
     Dates: start: 20080701, end: 20100412
  2. REVLIMID [Suspect]
     Indication: MULTIPLE MYELOMA
     Dosage: 25 MG, DAILY X 21 DAYS, PO; 25 MG, DAILY X 21 DAYS, PO
     Route: 048
     Dates: start: 20100428
  3. OMEPRAZOLE [Concomitant]
  4. DEXAMETHASONE [Concomitant]
  5. GABAPENTIN [Concomitant]
  6. VITAMIN B6 [Concomitant]
  7. METOCLOPRAMIDE [Concomitant]
  8. ASPIRIN [Concomitant]
  9. XANAX [Concomitant]
  10. ONDANSETRON HCL (ONDANSETRON HYDROCHLORIDE) [Concomitant]
  11. HYDROMORPHONE (HYDROMORPHONE) [Concomitant]
  12. SENOKOT [Concomitant]

REACTIONS (5)
  - COUGH [None]
  - BRONCHOSPASM [None]
  - ASTHMA [None]
  - DYSPNOEA [None]
  - ESCHERICHIA URINARY TRACT INFECTION [None]
